FAERS Safety Report 9026948 (Version 2)
Quarter: 2013Q1

REPORT INFORMATION
  Report Type: Spontaneous
  Country: US (occurrence: US)
  Receive Date: 20130123
  Receipt Date: 20130312
  Transmission Date: 20140127
  Serious: No
  Sender: FDA-Public Use
  Company Number: US-PFIZER INC-2013026536

PATIENT
  Age: 76 Year
  Sex: Female
  Weight: 63 kg

DRUGS (2)
  1. ADVIL PM [Suspect]
     Indication: INSOMNIA
     Dosage: UNK, ONCE A DAY
     Route: 048
     Dates: start: 201203, end: 201203
  2. ADVIL PM [Suspect]
     Dosage: UNK, ONCE A DAY
     Route: 048
     Dates: start: 20130120, end: 20130120

REACTIONS (1)
  - Drug ineffective [Unknown]
